FAERS Safety Report 13414465 (Version 3)
Quarter: 2018Q1

REPORT INFORMATION
  Report Type: Spontaneous
  Country: GB (occurrence: GB)
  Receive Date: 20170407
  Receipt Date: 20180131
  Transmission Date: 20180508
  Serious: Yes (Hospitalization, Other)
  Sender: FDA-Public Use
  Company Number: GB-MYLANLABS-2016M1035558

PATIENT
  Age: 66 Year
  Sex: Male

DRUGS (1)
  1. CLOZARIL [Suspect]
     Active Substance: CLOZAPINE
     Indication: SCHIZOPHRENIA
     Dosage: UNK
     Route: 048
     Dates: start: 20121207

REACTIONS (5)
  - Pneumonia [Unknown]
  - Sepsis [Unknown]
  - Schizophrenia [Unknown]
  - Therapy cessation [Unknown]
  - Palliative care [Unknown]

NARRATIVE: CASE EVENT DATE: 20170611
